FAERS Safety Report 8688239 (Version 4)
Quarter: 2012Q4

REPORT INFORMATION
  Report Type: Report from Study
  Country: US (occurrence: US)
  Receive Date: 20120727
  Receipt Date: 20121113
  Transmission Date: 20130627
  Serious: Yes (Hospitalization, Other)
  Sender: FDA-Public Use
  Company Number: US-AMGEN-USACT2012039156

PATIENT
  Age: 54 Year
  Sex: Female
  Weight: 73.45 kg

DRUGS (33)
  1. DENOSUMAB [Suspect]
     Indication: BREAST CANCER
     Dosage: UNK
     Dates: start: 20120305
  2. NEULASTA [Concomitant]
     Dosage: UNK
     Dates: start: 20120619
  3. DOCETAXEL [Concomitant]
     Dosage: 135 mg, UNK
     Route: 042
  4. DOXORUBICIN [Concomitant]
     Dosage: 90 mg, UNK
     Route: 042
  5. CYCLOPHOSPHAMIDE [Concomitant]
     Dosage: 900 mg, UNK
     Route: 042
  6. TIZANIDINE [Concomitant]
     Dosage: 2 mg, UNK
     Route: 048
     Dates: start: 20060101
  7. PALONOSETRON [Concomitant]
     Dosage: 0.25 mg, UNK
     Route: 042
     Dates: start: 20120305
  8. DEXAMETHASONE [Concomitant]
     Dosage: 10 mg, UNK
     Route: 042
     Dates: start: 20120304
  9. COMPAZINE [Concomitant]
     Dosage: 25 mg, UNK
     Route: 054
     Dates: start: 20120305
  10. ROCEPHIN [Concomitant]
     Dosage: 2 g, UNK
     Route: 042
     Dates: start: 20120402, end: 20120626
  11. VALTREX [Concomitant]
     Dosage: 1000 mg, UNK
     Route: 048
     Dates: start: 20120402, end: 20120416
  12. PROTONIX [Concomitant]
     Dosage: 40 mg, UNK
     Route: 048
     Dates: start: 20120402
  13. CLINDAMYCIN [Concomitant]
     Dosage: 300 mg, UNK
     Route: 048
     Dates: start: 20120402, end: 20120416
  14. HYDROCODONE/APAP [Concomitant]
     Indication: PAIN
     Dosage: UNK
     Route: 048
     Dates: start: 20120104
  15. VITAMIN D3 [Concomitant]
     Dosage: 5000 IU, UNK
     Route: 048
     Dates: start: 20120305
  16. DIFLUCAN [Concomitant]
     Dosage: 100 mg, UNK
     Route: 048
     Dates: start: 20120604, end: 20120609
  17. AMITRIPTYLINE [Concomitant]
     Dosage: 20 mg, UNK
     Route: 048
     Dates: start: 20070101
  18. AMLODIPINE [Concomitant]
     Dosage: 10 mg, UNK
     Route: 048
     Dates: start: 20060101
  19. BYSTOLIC [Concomitant]
     Dosage: 10 mg, UNK
     Route: 048
     Dates: start: 20060101
  20. CLONIDINE [Concomitant]
     Dosage: 0.1 mg, UNK
     Route: 048
     Dates: start: 20060101
  21. CYCLOBENZAPRINE [Concomitant]
     Dosage: 10 mg, UNK
     Route: 048
     Dates: start: 20060101
  22. METHADONE [Concomitant]
     Dosage: 10 mg, UNK
     Route: 048
     Dates: start: 20060101
  23. SERTRALINE [Concomitant]
     Dosage: 50 mg, UNK
     Route: 048
     Dates: start: 20070101
  24. CALCIUM CARBONATE [Concomitant]
     Dosage: 500 mg, UNK
     Route: 048
     Dates: start: 20120305
  25. VORICONAZOLE [Concomitant]
  26. ZOFRAN [Concomitant]
     Indication: NAUSEA
     Dosage: 4 mg, prn
     Route: 042
  27. ZOFRAN [Concomitant]
     Indication: VOMITING
  28. TYLENOL [Concomitant]
     Indication: BODY TEMPERATURE INCREASED
     Dosage: UNK UNK, prn
  29. VALSARTAN [Concomitant]
  30. PROMETHAZINE [Concomitant]
     Indication: NAUSEA
     Dosage: UNK UNK, prn
  31. PROMETHAZINE [Concomitant]
     Indication: VOMITING
  32. ADVIL [Concomitant]
     Dosage: UNK UNK, prn
  33. ATIVAN [Concomitant]
     Indication: INSOMNIA
     Dosage: UNK UNK, prn

REACTIONS (1)
  - Febrile neutropenia [Recovered/Resolved]
